FAERS Safety Report 18303293 (Version 4)
Quarter: 2021Q3

REPORT INFORMATION
  Report Type: Report from Study
  Country: BE (occurrence: BE)
  Receive Date: 20200923
  Receipt Date: 20210705
  Transmission Date: 20211014
  Serious: Yes (Other)
  Sender: FDA-Public Use
  Company Number: BE-VERTEX PHARMACEUTICALS-2020-017702

PATIENT
  Age: 58 Year
  Sex: Female
  Weight: 47 kg

DRUGS (14)
  1. KALYDECO [Suspect]
     Active Substance: IVACAFTOR
     Dosage: HALF DOSAGE REGIMEN
     Route: 048
     Dates: start: 20200831
  2. PULMOZYME [Concomitant]
     Active Substance: DORNASE ALFA
     Indication: CYSTIC FIBROSIS LUNG
     Dosage: 2.5 MILLILITER, QD
     Dates: start: 20040325
  3. KAFTRIO [Suspect]
     Active Substance: ELEXACAFTOR\IVACAFTOR\TEZACAFTOR
     Dosage: 2 MORNING DOSE
     Route: 048
     Dates: start: 20210104
  4. KALYDECO [Suspect]
     Active Substance: IVACAFTOR
     Indication: CYSTIC FIBROSIS
     Dosage: 150MG IVACAFTOR, QD
     Route: 048
     Dates: start: 20200731
  5. AZITHROMYCIN ANHYDROUS. [Suspect]
     Active Substance: AZITHROMYCIN ANHYDROUS
     Indication: PRODUCT USED FOR UNKNOWN INDICATION
     Dosage: 500 MILLIGRAM, 3X1 WEEK
     Route: 065
     Dates: end: 2020
  6. PANTOMED [PANTOPRAZOLE SODIUM SESQUIHYDRATE] [Concomitant]
     Active Substance: PANTOPRAZOLE SODIUM
     Indication: REFLUX GASTRITIS
     Dosage: 40 MG, QD
     Route: 048
     Dates: start: 20110908
  7. NOVORAPID [Concomitant]
     Active Substance: INSULIN ASPART
     Indication: CYSTIC FIBROSIS RELATED DIABETES
     Dosage: UNK, TID
     Route: 058
     Dates: start: 201709
  8. KAFTRIO [Suspect]
     Active Substance: ELEXACAFTOR\IVACAFTOR\TEZACAFTOR
     Dosage: 1 TABLET OF MORNING DOSE ONE DAY ALTERNATIVE WITH 2 TABLETS OF MORNING DOSE
     Route: 048
     Dates: start: 20200831, end: 202101
  9. ASAFLOW [Concomitant]
     Active Substance: ASPIRIN
     Indication: THROMBOSIS PROPHYLAXIS
     Dosage: 80 MG, QD
     Route: 048
     Dates: start: 20190207
  10. KAFTRIO [Suspect]
     Active Substance: ELEXACAFTOR\IVACAFTOR\TEZACAFTOR
     Indication: CYSTIC FIBROSIS
     Dosage: 100MG ELEXACAFTOR/ 50MG TEZACAFTOR/ 75MG IVACAFTOR, QD
     Route: 048
     Dates: start: 20200731
  11. DUOVENT [Concomitant]
     Active Substance: FENOTEROL HYDROBROMIDE
     Indication: BRONCHIAL HYPERREACTIVITY
     Dosage: 4 MILLILITER, PRN
     Dates: start: 20170517
  12. CREON [Concomitant]
     Active Substance: PANCRELIPASE AMYLASE\PANCRELIPASE LIPASE\PANCRELIPASE PROTEASE
     Indication: PANCREATIC FAILURE
     Dosage: 10?12 TABLETS/ DAY
     Route: 048
     Dates: start: 1999
  13. VISTA D3 [Concomitant]
     Indication: PANCREATIC FAILURE
     Dosage: 1/ MONTH
     Route: 048
     Dates: start: 20190523
  14. KALYDECO [Suspect]
     Active Substance: IVACAFTOR
     Dosage: ONE EVENING TABLET
     Route: 048
     Dates: start: 20210104

REACTIONS (1)
  - Drug-induced liver injury [Recovered/Resolved]

NARRATIVE: CASE EVENT DATE: 20200820
